FAERS Safety Report 14241933 (Version 2)
Quarter: 2017Q4

REPORT INFORMATION
  Report Type: Spontaneous
  Country: BR (occurrence: BR)
  Receive Date: 20171201
  Receipt Date: 20171225
  Transmission Date: 20180321
  Serious: Yes (Hospitalization, Other)
  Sender: FDA-Public Use
  Company Number: BR-AMGEN-BRASP2017177536

PATIENT
  Age: 55 Year
  Sex: Female

DRUGS (4)
  1. 5-FU [Concomitant]
     Active Substance: FLUOROURACIL
     Indication: ADENOCARCINOMA OF COLON
     Dosage: UNK UNK, CYCLICAL
  2. OXALIPLATIN. [Concomitant]
     Active Substance: OXALIPLATIN
     Indication: ADENOCARCINOMA OF COLON
     Dosage: UNK UNK, CYCLICAL
  3. VECTIBIX [Suspect]
     Active Substance: PANITUMUMAB
     Indication: ADENOCARCINOMA OF COLON
     Dosage: UNK, CYCLICAL
     Route: 065
  4. FOLINIC ACID [Concomitant]
     Active Substance: LEUCOVORIN
     Indication: ADENOCARCINOMA OF COLON
     Dosage: UNK UNK, CYCLICAL

REACTIONS (6)
  - Neuropathy peripheral [Not Recovered/Not Resolved]
  - Neurotoxicity [Unknown]
  - Skin toxicity [Unknown]
  - Metastases to liver [Unknown]
  - Carcinoembryonic antigen increased [Unknown]
  - Anaemia [Unknown]

NARRATIVE: CASE EVENT DATE: 20160312
